FAERS Safety Report 24126728 (Version 2)
Quarter: 2024Q3

REPORT INFORMATION
  Report Type: Spontaneous
  Country: AE (occurrence: AE)
  Receive Date: 20240723
  Receipt Date: 20240729
  Transmission Date: 20241016
  Serious: Yes (Other)
  Sender: PFIZER
  Company Number: AE-MLMSERVICE-20240712-PI128204-00270-1

PATIENT
  Age: 41 Year
  Sex: Female

DRUGS (2)
  1. METHYLPREDNISOLONE SODIUM SUCCINATE [Suspect]
     Active Substance: METHYLPREDNISOLONE SODIUM SUCCINATE
     Indication: Optic neuritis
     Dosage: 1 G, DAILY
     Route: 042
  2. METHYLPREDNISOLONE SODIUM SUCCINATE [Suspect]
     Active Substance: METHYLPREDNISOLONE SODIUM SUCCINATE
     Indication: Evidence based treatment

REACTIONS (6)
  - Optic neuritis [Recovered/Resolved]
  - Condition aggravated [Recovered/Resolved]
  - Retinal neovascularisation [Recovered/Resolved]
  - Cytomegalovirus chorioretinitis [Recovered/Resolved]
  - Retinal occlusive vasculitis [Recovered/Resolved]
  - Retinopathy [Recovered/Resolved]
